FAERS Safety Report 7184094-9 (Version None)
Quarter: 2010Q4

REPORT INFORMATION
  Report Type: 
  Country: None (occurrence: None)
  Receive Date: 20101222
  Receipt Date: 20101217
  Transmission Date: 20110411
  Serious: Yes (Hospitalization)
  Sender: FDA-Public Use
  Company Number: PHHO2010IN12678

PATIENT
  Sex: Female
  Weight: 58 kg

DRUGS (10)
  1. BLINDED ALISKIREN ALI+TAB+CF [Suspect]
     Dosage: CODE NOT BROKEN
     Route: 048
     Dates: start: 20100629, end: 20100820
  2. ENALAPRIL MALEATE [Suspect]
     Dosage: CODE NOT BROKEN
     Route: 048
     Dates: start: 20100629, end: 20100820
  3. BLINDED NO TREATMENT RECEIVED NOMED [Suspect]
     Dosage: CODE NOT BROKEN
     Route: 048
     Dates: start: 20100629, end: 20100820
  4. ALISKIREN [Suspect]
     Indication: CARDIAC FAILURE
  5. COMPARATOR ENALAPRIL [Suspect]
     Indication: CARDIAC FAILURE
  6. SPIRONOLACTONE [Suspect]
     Indication: CARDIAC FAILURE
  7. LANOXIN [Suspect]
  8. FRUSEMIDE [Concomitant]
     Indication: CARDIAC FAILURE
  9. ASPIRIN [Concomitant]
  10. ATORVASTATIN [Concomitant]

REACTIONS (8)
  - ALANINE AMINOTRANSFERASE INCREASED [None]
  - CARDIAC FAILURE [None]
  - DIZZINESS [None]
  - GASTRITIS [None]
  - HYPERKALAEMIA [None]
  - HYPOTENSION [None]
  - NAUSEA [None]
  - THERAPEUTIC AGENT TOXICITY [None]
